FAERS Safety Report 16456220 (Version 4)
Quarter: 2019Q3

REPORT INFORMATION
  Report Type: Spontaneous
  Country: US (occurrence: US)
  Receive Date: 20190620
  Receipt Date: 20190731
  Transmission Date: 20191004
  Serious: No
  Sender: FDA-Public Use
  Company Number: US-UNITED THERAPEUTICS-UNT-2019-010211

PATIENT
  Age: 73 Year
  Sex: Female

DRUGS (4)
  1. TRAMADOL. [Suspect]
     Active Substance: TRAMADOL
     Indication: PRODUCT USED FOR UNKNOWN INDICATION
     Dosage: UNK
     Route: 065
  2. REMODULIN [Suspect]
     Active Substance: TREPROSTINIL
     Dosage: 0.076 ?G/KG, CONTINUING
     Route: 041
     Dates: start: 20180927
  3. REMODULIN [Suspect]
     Active Substance: TREPROSTINIL
     Indication: PULMONARY ARTERIAL HYPERTENSION
     Dosage: UNK, CONTINUING
     Route: 041
     Dates: start: 20180828
  4. REMODULIN [Suspect]
     Active Substance: TREPROSTINIL
     Dosage: 0.080 ?G/KG, CONTINUING
     Route: 041
     Dates: start: 20180928

REACTIONS (7)
  - Arthralgia [Unknown]
  - Retching [Unknown]
  - Abdominal discomfort [Unknown]
  - Oedema [Unknown]
  - Pain in jaw [Unknown]
  - Nausea [Unknown]
  - Pain in extremity [Unknown]

NARRATIVE: CASE EVENT DATE: 20190610
